FAERS Safety Report 6859621-9 (Version None)
Quarter: 2010Q3

REPORT INFORMATION
  Report Type: 
  Country: None (occurrence: None)
  Receive Date: 20100719
  Receipt Date: 20090116
  Transmission Date: 20110219
  Serious: No
  Sender: FDA-Public Use
  Company Number: US-PFIZER INC-2008014145

PATIENT
  Sex: Female
  Weight: 77.1 kg

DRUGS (9)
  1. CHANTIX [Suspect]
     Indication: SMOKING CESSATION THERAPY
     Dates: start: 20071001
  2. NEURONTIN [Interacting]
     Indication: HYPOAESTHESIA
     Dates: start: 19990101
  3. ALL OTHER THERAPEUTIC PRODUCTS [Concomitant]
  4. NITROGLYCERIN [Concomitant]
  5. LIPITOR [Concomitant]
  6. ATIVAN [Concomitant]
  7. CARDURA [Concomitant]
  8. SOMA [Concomitant]
  9. VITAMIN B12 FOR INJECTION [Concomitant]

REACTIONS (18)
  - ABDOMINAL DISTENSION [None]
  - ABDOMINAL PAIN [None]
  - BLOOD PRESSURE ABNORMAL [None]
  - BODY TEMPERATURE DECREASED [None]
  - CONSTIPATION [None]
  - DRUG INTERACTION [None]
  - DYSARTHRIA [None]
  - FATIGUE [None]
  - GASTROINTESTINAL PAIN [None]
  - HEAD INJURY [None]
  - HEADACHE [None]
  - HYPERSENSITIVITY [None]
  - INSOMNIA [None]
  - INTENTIONAL DRUG MISUSE [None]
  - MALAISE [None]
  - MUSCULAR WEAKNESS [None]
  - TOOTH FRACTURE [None]
  - WEIGHT INCREASED [None]
